FAERS Safety Report 11863407 (Version 1)
Quarter: 2015Q4

REPORT INFORMATION
  Report Type: Spontaneous
  Country: IN (occurrence: IN)
  Receive Date: 20151223
  Receipt Date: 20151223
  Transmission Date: 20160305
  Serious: Yes (Death)
  Sender: FDA-Public Use
  Company Number: IN-WATSON-2015-28059

PATIENT
  Age: 36 Year
  Sex: Male

DRUGS (2)
  1. THALIDOMIDE [Concomitant]
     Active Substance: THALIDOMIDE
     Indication: TYPE 2 LEPRA REACTION
     Dosage: UNK
     Route: 065
  2. PREDNISOLONE (UNKNOWN) [Suspect]
     Active Substance: PREDNISOLONE
     Indication: LEPROMATOUS LEPROSY
     Dosage: 50 MG, DAILY
     Route: 065

REACTIONS (5)
  - Sepsis [Fatal]
  - Inappropriate antidiuretic hormone secretion [Fatal]
  - Strongyloidiasis [Fatal]
  - Adrenal haemorrhage [Fatal]
  - Multi-organ failure [Fatal]
